FAERS Safety Report 8854962 (Version 1)
Quarter: 2012Q4

REPORT INFORMATION
  Report Type: 
  Country: US (occurrence: US)
  Receive Date: 20121023
  Receipt Date: 20121023
  Transmission Date: 20130627
  Serious: No
  Sender: FDA-Public Use
  Company Number: US-PFIZER INC-2012261006

PATIENT
  Age: 58 Year
  Sex: Female
  Weight: 68.03 kg

DRUGS (9)
  1. LYRICA [Suspect]
     Indication: FIBROMYALGIA
     Dosage: 50 mg, 2x/day
     Route: 048
  2. SEROQUEL [Concomitant]
     Dosage: 50 mg, UNK
  3. HALOPERIDOL [Concomitant]
     Dosage: UNK, 1x/day
  4. BENZTROPINE MESYLATE [Concomitant]
     Dosage: 0.5 mg, 1x/day
  5. ALPRAZOLAM [Concomitant]
     Dosage: 0.5 mg, UNK
  6. CLONAZEPAM [Concomitant]
     Dosage: 1 mg, 4x/day
  7. IBUPROFEN [Concomitant]
     Indication: PAIN
     Dosage: 800 mg, as needed
  8. GABAPENTIN [Concomitant]
     Indication: PAIN
     Dosage: 300 mg, as needed
  9. HYDROCODONE W/ACETAMINOPHEN [Concomitant]
     Indication: PAIN
     Dosage: 10/325 mg, as needed

REACTIONS (1)
  - Dizziness [Unknown]
